FAERS Safety Report 12408850 (Version 4)
Quarter: 2016Q4

REPORT INFORMATION
  Report Type: Report from Study
  Country: US (occurrence: US)
  Receive Date: 20160526
  Receipt Date: 20161017
  Transmission Date: 20170207
  Serious: No
  Sender: FDA-Public Use
  Company Number: US-JNJFOC-20151224311

PATIENT
  Age: 19 Year
  Sex: Female
  Weight: 62.3 kg

DRUGS (1)
  1. REMICADE [Suspect]
     Active Substance: INFLIXIMAB
     Indication: INFLAMMATORY BOWEL DISEASE
     Route: 042
     Dates: start: 20121129

REACTIONS (1)
  - Chorioretinitis [Not Recovered/Not Resolved]

NARRATIVE: CASE EVENT DATE: 20151107
